FAERS Safety Report 6170087-7 (Version None)
Quarter: 2009Q2

REPORT INFORMATION
  Report Type: 
  Country: None (occurrence: None)
  Receive Date: 20090428
  Receipt Date: 20090424
  Transmission Date: 20091009
  Serious: Yes (Hospitalization)
  Sender: FDA-Public Use
  Company Number: A0780851A

PATIENT
  Sex: Female
  Weight: 56.9 kg

DRUGS (3)
  1. LAPATINIB [Suspect]
     Dosage: 1000MG PER DAY
     Route: 048
  2. PACLITAXEL [Suspect]
     Dosage: 80MGM2 CYCLIC
     Route: 042
  3. TRASTUZUMAB [Suspect]
     Dosage: 2MGK WEEKLY
     Route: 042

REACTIONS (4)
  - ANOREXIA [None]
  - DEHYDRATION [None]
  - DIARRHOEA [None]
  - NAUSEA [None]
